FAERS Safety Report 8404771-9 (Version None)
Quarter: 2012Q2

REPORT INFORMATION
  Report Type: 
  Country: None (occurrence: None)
  Receive Date: 20120601
  Receipt Date: 20120530
  Transmission Date: 20120825
  Serious: Yes (Life-Threatening, Hospitalization, Other)
  Sender: FDA-Public Use
  Company Number: DK-GILEAD-2012-0053980

PATIENT
  Age: 24 Year
  Sex: Female

DRUGS (6)
  1. EFAVIRENZ/EMTRICITABINE/TENOFOVIR DISOPROXIL FUMARATE [Suspect]
     Indication: HIV INFECTION
     Dosage: 1 DF, QD
     Route: 048
     Dates: start: 20120306, end: 20120411
  2. MEFENAMIC ACID [Concomitant]
     Indication: MENORRHAGIA
  3. TRANEXAMIC [Concomitant]
     Indication: PRODUCT USED FOR UNKNOWN INDICATION
  4. EFAVIRENZ/EMTRICITABINE/TENOFOVIR DISOPROXIL FUMARATE [Suspect]
     Dosage: 5 UNK, UNK
     Dates: start: 20120412, end: 20120412
  5. OMEPRAZOLE [Concomitant]
     Indication: PRODUCT USED FOR UNKNOWN INDICATION
  6. METRONIDAZOLE [Concomitant]
     Indication: MENORRHAGIA

REACTIONS (1)
  - INTENTIONAL OVERDOSE [None]
